FAERS Safety Report 7609747 (Version 3)
Quarter: 2012Q4

REPORT INFORMATION
  Report Type: 
  Country: US (occurrence: US)
  Receive Date: 20100928
  Receipt Date: 20120907
  Transmission Date: 20130627
  Serious: Yes (Hospitalization)
  Sender: FDA-Public Use
  Company Number: US-BAYER-201034711NA

PATIENT
  Age: 30 Year
  Sex: Female
  Weight: 73 kg

DRUGS (6)
  1. YAZ [Suspect]
     Indication: PREMENSTRUAL SYNDROME
     Dates: start: 20080501, end: 20080718
  2. ZITHROMAX [Concomitant]
     Dosage: UNK
     Dates: start: 200807
  3. ALKA SELTZER [Concomitant]
     Indication: DYSPNOEA
     Dosage: UNK
     Dates: start: 20080720
  4. ALKA SELTZER [Concomitant]
     Indication: GASTROOESOPHAGEAL REFLUX DISEASE
  5. PRILOSEC [Concomitant]
     Indication: DYSPNOEA
     Dosage: UNK
     Dates: start: 20080720
  6. PRILOSEC [Concomitant]
     Indication: GASTROOESOPHAGEAL REFLUX DISEASE

REACTIONS (1)
  - Pelvic venous thrombosis [None]
